FAERS Safety Report 9326345 (Version 2)
Quarter: 2013Q3

REPORT INFORMATION
  Report Type: Spontaneous
  Country: US (occurrence: US)
  Receive Date: 20130604
  Receipt Date: 20130719
  Transmission Date: 20140515
  Serious: Yes (Hospitalization, Other)
  Sender: FDA-Public Use
  Company Number: US-ABBOTT-13P-163-1096269-00

PATIENT
  Age: 58 Year
  Sex: Male
  Weight: 93.07 kg

DRUGS (18)
  1. HUMIRA [Suspect]
     Indication: PSORIASIS
     Dates: start: 2008, end: 2010
  2. ENBREL [Suspect]
     Indication: PRODUCT USED FOR UNKNOWN INDICATION
     Dates: end: 201009
  3. GENTAMICIN [Suspect]
     Indication: PRODUCT USED FOR UNKNOWN INDICATION
     Route: 042
  4. UNSPECIFIED [Suspect]
     Indication: PRODUCT USED FOR UNKNOWN INDICATION
     Route: 042
  5. LIPITOR [Concomitant]
     Indication: PRODUCT USED FOR UNKNOWN INDICATION
  6. COUMADIN [Concomitant]
     Indication: ANTICOAGULANT THERAPY
     Dates: end: 20110617
  7. CLOBEX [Concomitant]
     Indication: PRODUCT USED FOR UNKNOWN INDICATION
     Dosage: SPRAY
  8. VITAMIN D3 [Concomitant]
     Indication: PRODUCT USED FOR UNKNOWN INDICATION
  9. VITAMIN D3 [Concomitant]
  10. VITAMIN D3 [Concomitant]
  11. VITAMIN D3 [Concomitant]
  12. VITAMIN D3 [Concomitant]
  13. VITAMIN D3 [Concomitant]
  14. VITAMIN D3 [Concomitant]
  15. VITAMIN D3 [Concomitant]
  16. VITAMIN D3 [Concomitant]
  17. VITAMIN D3 [Concomitant]
  18. VITAMIN D2 [Concomitant]
     Indication: PRODUCT USED FOR UNKNOWN INDICATION
     Route: 048

REACTIONS (33)
  - Cardiac pseudoaneurysm [Recovered/Resolved]
  - Salmonella bacteraemia [Recovered/Resolved]
  - Sepsis [Recovered/Resolved]
  - Abscess bacterial [Recovered/Resolved]
  - Mass [Unknown]
  - Aortic valve replacement [Unknown]
  - Drug hypersensitivity [Unknown]
  - Deafness [Unknown]
  - Toxicity to various agents [Unknown]
  - Dizziness [Not Recovered/Not Resolved]
  - Ototoxicity [Unknown]
  - Gait disturbance [Unknown]
  - Oscillopsia [Unknown]
  - Squamous cell carcinoma [Unknown]
  - Basal cell carcinoma [Unknown]
  - Cerebral infarction [Recovering/Resolving]
  - Dupuytren^s contracture [Not Recovered/Not Resolved]
  - Rhinitis [Not Recovered/Not Resolved]
  - Musculoskeletal pain [Not Recovered/Not Resolved]
  - Arthralgia [Unknown]
  - Periarthritis [Unknown]
  - Psoriatic arthropathy [Unknown]
  - Enthesopathy [Unknown]
  - Muscle twitching [Not Recovered/Not Resolved]
  - Depression [Not Recovered/Not Resolved]
  - Ulcer [Unknown]
  - Carotid arteriosclerosis [Unknown]
  - Gastrooesophageal reflux disease [Not Recovered/Not Resolved]
  - Arthropod bite [Unknown]
  - Erythema migrans [Not Recovered/Not Resolved]
  - Panic reaction [Not Recovered/Not Resolved]
  - Dyskinesia [Not Recovered/Not Resolved]
  - Cerebrovascular accident [Recovering/Resolving]
